FAERS Safety Report 7549884-9 (Version None)
Quarter: 2011Q2

REPORT INFORMATION
  Report Type: 
  Country: None (occurrence: None)
  Receive Date: 20110615
  Receipt Date: 20110601
  Transmission Date: 20111010
  Serious: Yes (Hospitalization)
  Sender: FDA-Public Use
  Company Number: US-JNJFOC-20110603326

PATIENT
  Sex: Female

DRUGS (9)
  1. USTEKINUMAB-BLINDED [Concomitant]
     Indication: PSORIATIC ARTHROPATHY
     Route: 058
     Dates: start: 20110505, end: 20110505
  2. DIAZEPAM [Concomitant]
     Route: 048
     Dates: start: 20101001
  3. VICODIN [Concomitant]
     Route: 048
     Dates: start: 20101015
  4. BENADRYL [Suspect]
     Indication: SUICIDE ATTEMPT
     Dosage: 30 TABLETS
     Route: 048
  5. MULTI-VITAMINS [Concomitant]
     Route: 048
     Dates: start: 20080101
  6. TYLENOL-500 [Concomitant]
     Route: 048
     Dates: start: 20080101
  7. PLACEBO [Concomitant]
     Indication: PSORIATIC ARTHROPATHY
     Dates: start: 20110505
  8. BENADRYL [Suspect]
     Route: 048
  9. PREDNISONE [Concomitant]
     Route: 048
     Dates: start: 20110311

REACTIONS (4)
  - SUICIDE ATTEMPT [None]
  - INTENTIONAL OVERDOSE [None]
  - SOMNOLENCE [None]
  - RESPIRATORY RATE DECREASED [None]
